FAERS Safety Report 6785697-3 (Version None)
Quarter: 2010Q2

REPORT INFORMATION
  Report Type: 
  Country: None (occurrence: None)
  Receive Date: 20100623
  Receipt Date: 20100607
  Transmission Date: 20101027
  Serious: Yes (Hospitalization)
  Sender: FDA-Public Use
  Company Number: JP-BRISTOL-MYERS SQUIBB COMPANY-15159825

PATIENT
  Age: 54 Year
  Sex: Male

DRUGS (3)
  1. TAXOL [Suspect]
     Indication: ANGIOSARCOMA
     Dosage: INTERRUPTED AND REINTRODUCED
     Route: 013
  2. PROLEUKIN [Suspect]
     Indication: ANGIOSARCOMA
  3. RADIOTHERAPY [Suspect]
     Indication: ANGIOSARCOMA
     Dosage: 69 GY FOR THE HEAD, 56 GY FOR THE NECK

REACTIONS (3)
  - EXTRADURAL ABSCESS [None]
  - OSTEONECROSIS [None]
  - SKIN GRAFT FAILURE [None]
